FAERS Safety Report 8986854 (Version 1)
Quarter: 2012Q4

REPORT INFORMATION
  Report Type: 
  Country: DK (occurrence: DK)
  Receive Date: 20121226
  Receipt Date: 20121226
  Transmission Date: 20130627
  Serious: Yes (Other)
  Sender: FDA-Public Use
  Company Number: PHHY2012DK118618

PATIENT
  Age: 74 Year
  Sex: Female

DRUGS (8)
  1. METHOTREXATE [Suspect]
     Indication: RHEUMATOID ARTHRITIS
     Dates: start: 20020627, end: 20061023
  2. REMICADE [Suspect]
     Indication: RHEUMATOID ARTHRITIS
     Dates: start: 20020627, end: 20050316
  3. HUMIRA [Suspect]
     Indication: RHEUMATOID ARTHRITIS
     Dates: start: 20050518, end: 20100318
  4. ENBREL [Suspect]
     Indication: RHEUMATOID ARTHRITIS
     Dosage: 50 mg, QW
     Dates: start: 20120718, end: 20121220
  5. METOPROLOL SUCCINATE [Concomitant]
  6. HJERTEMAGNYL                       /00228701/ [Concomitant]
  7. CORODIL [Concomitant]
  8. PREDNISOLONE [Concomitant]
     Dosage: UNK UKN, UNK
     Dates: start: 20020627, end: 20050316

REACTIONS (4)
  - Myelofibrosis [Not Recovered/Not Resolved]
  - Weight decreased [Not Recovered/Not Resolved]
  - Splenomegaly [Not Recovered/Not Resolved]
  - Pancytopenia [Not Recovered/Not Resolved]
